FAERS Safety Report 8482640-6 (Version None)
Quarter: 2012Q3

REPORT INFORMATION
  Report Type: 
  Country: None (occurrence: None)
  Receive Date: 20120702
  Receipt Date: 20120627
  Transmission Date: 20120928
  Serious: Yes (Hospitalization, Disabling, Other)
  Sender: FDA-Public Use
  Company Number: US-MERCK-1201USA00333

PATIENT
  Age: 76 Year
  Sex: Female
  Weight: 63 kg

DRUGS (7)
  1. FOSAMAX [Suspect]
     Indication: OSTEOPENIA
     Route: 048
     Dates: start: 20010122, end: 20090511
  2. FOSAMAX [Suspect]
     Indication: OSTEOPOROSIS
     Route: 048
     Dates: start: 20010122, end: 20090511
  3. FOSAMAX PLUS D [Suspect]
     Indication: BONE LOSS
     Route: 048
     Dates: start: 20060430, end: 20110801
  4. MULTI-VITAMINS [Concomitant]
     Route: 065
  5. FOSAMAX [Suspect]
     Indication: BONE LOSS
     Route: 048
     Dates: start: 20091109, end: 20110215
  6. CALCIUM (UNSPECIFIED) [Concomitant]
     Route: 065
  7. VITAMIN D (UNSPECIFIED) [Concomitant]
     Route: 065

REACTIONS (18)
  - FEMUR FRACTURE [None]
  - EXOSTOSIS [None]
  - TONSILLAR DISORDER [None]
  - PARAESTHESIA [None]
  - SPINAL OSTEOARTHRITIS [None]
  - NODAL OSTEOARTHRITIS [None]
  - BLADDER DISORDER [None]
  - APPENDIX DISORDER [None]
  - HYPOAESTHESIA [None]
  - OSTEOSCLEROSIS [None]
  - INTERVERTEBRAL DISC DEGENERATION [None]
  - MENISCUS LESION [None]
  - OSTEOARTHRITIS [None]
  - LUNG DISORDER [None]
  - VENTRICULAR EXTRASYSTOLES [None]
  - DRUG INEFFECTIVE [None]
  - INTERVERTEBRAL DISC DISORDER [None]
  - VITAMIN D DEFICIENCY [None]
